FAERS Safety Report 11311287 (Version 1)
Quarter: 2015Q3

REPORT INFORMATION
  Report Type: Spontaneous
  Country: ES (occurrence: None)
  Receive Date: 20150723
  Receipt Date: 20150723
  Transmission Date: 20151125
  Serious: Yes (Other)
  Sender: FDA-Public Use
  Company Number: COR_00335_2015

PATIENT
  Age: 66 Year
  Sex: Female

DRUGS (6)
  1. CARBOPLATIN. [Suspect]
     Active Substance: CARBOPLATIN
     Indication: RENAL CELL CARCINOMA
     Dosage: CONTINUOUS INFUSION OVER 30 MINUTES 4 CYCLES
  2. DEXAMETHASONE. [Concomitant]
     Active Substance: DEXAMETHASONE
  3. PEMETREXED (PEMETREXED) [Suspect]
     Active Substance: PEMETREXED
     Indication: RENAL CELL CARCINOMA
     Dosage: CONTINUOUS INFUSION OVER 10 MINUTES, 4 CYCLES
  4. PEMETREXED (PEMETREXED) [Suspect]
     Active Substance: PEMETREXED
     Indication: LUNG ADENOCARCINOMA
     Dosage: CONTINUOUS INFUSION OVER 10 MINUTES, 4 CYCLES
  5. GRANISETRON [Concomitant]
     Active Substance: GRANISETRON
  6. CARBOPLATIN. [Suspect]
     Active Substance: CARBOPLATIN
     Indication: LUNG ADENOCARCINOMA
     Dosage: CONTINUOUS INFUSION OVER 30 MINUTES 4 CYCLES

REACTIONS (3)
  - Cutaneous lupus erythematosus [None]
  - No therapeutic response [None]
  - Normochromic normocytic anaemia [None]
